FAERS Safety Report 9501708 (Version 2)
Quarter: 2013Q3

REPORT INFORMATION
  Report Type: Spontaneous
  Country: CN (occurrence: CN)
  Receive Date: 20130905
  Receipt Date: 20130920
  Transmission Date: 20140515
  Serious: Yes (Other)
  Sender: FDA-Public Use
  Company Number: CN-PFIZER INC-2013252845

PATIENT
  Age: 37 Year
  Sex: Male
  Weight: 55 kg

DRUGS (4)
  1. CYTOSAR-U [Suspect]
     Indication: LYMPHOCYTIC LEUKAEMIA
     Dosage: 3 G, 2X/DAY
     Route: 041
     Dates: start: 20120812, end: 20120813
  2. CYTOSAR-U [Suspect]
     Indication: LYMPHOCYTIC LEUKAEMIA
  3. METHOTREXATE SODIUM [Suspect]
     Indication: LYMPHOCYTIC LEUKAEMIA
     Dosage: UNK
  4. METHOTREXATE SODIUM [Suspect]
     Indication: ACUTE LYMPHOCYTIC LEUKAEMIA

REACTIONS (2)
  - Alanine aminotransferase increased [Recovered/Resolved]
  - Aspartate aminotransferase increased [Recovered/Resolved]
